FAERS Safety Report 10619042 (Version 1)
Quarter: 2014Q4

REPORT INFORMATION
  Report Type: Report from Study
  Country: CA (occurrence: CA)
  Receive Date: 20141202
  Receipt Date: 20141202
  Transmission Date: 20150529
  Serious: Yes (Hospitalization)
  Sender: FDA-Public Use
  Company Number: CA-JNJFOC-20141117434

PATIENT
  Age: 37 Year
  Sex: Female
  Weight: 52.8 kg

DRUGS (6)
  1. REMICADE [Suspect]
     Active Substance: INFLIXIMAB
     Indication: COLITIS ULCERATIVE
     Route: 042
     Dates: start: 20140821
  2. REMICADE [Suspect]
     Active Substance: INFLIXIMAB
     Indication: COLITIS ULCERATIVE
     Dosage: WEEK 2, INFUSION WAS HELD
     Route: 042
     Dates: start: 20141030
  3. PENTASA [Concomitant]
     Active Substance: MESALAMINE
     Indication: COLITIS ULCERATIVE
     Route: 048
  4. IRON SUPPLEMENTS [Concomitant]
     Active Substance: IRON
     Indication: COLITIS ULCERATIVE
     Route: 065
  5. ASACOL [Concomitant]
     Active Substance: MESALAMINE
     Indication: COLITIS ULCERATIVE
     Route: 048
  6. REMICADE [Suspect]
     Active Substance: INFLIXIMAB
     Indication: COLITIS ULCERATIVE
     Dosage: WEEK 6
     Route: 042
     Dates: start: 20141125

REACTIONS (3)
  - Pyrexia [Unknown]
  - Musculoskeletal stiffness [Unknown]
  - Headache [Unknown]

NARRATIVE: CASE EVENT DATE: 20140907
